FAERS Safety Report 8991134 (Version 1)
Quarter: 2012Q4

REPORT INFORMATION
  Report Type: Spontaneous
  Country: US (occurrence: None)
  Receive Date: 20121219
  Receipt Date: 20121219
  Transmission Date: 20130627
  Serious: Yes (Other)
  Sender: FDA-Public Use
  Company Number: TPA2012A09724

PATIENT
  Sex: Female

DRUGS (1)
  1. EDARBYCLOR [Suspect]
     Indication: BLOOD PRESSURE HIGH
     Dosage: Per oral
     Route: 048

REACTIONS (2)
  - Hypokalaemia [None]
  - Coma [None]
